FAERS Safety Report 19006761 (Version 1)
Quarter: 2021Q1

REPORT INFORMATION
  Report Type: Spontaneous
  Country: GB (occurrence: GB)
  Receive Date: 20210315
  Receipt Date: 20210315
  Transmission Date: 20210420
  Serious: Yes (Other)
  Sender: FDA-Public Use
  Company Number: GB-DRREDDYS-GER/UKI/21/0132701

PATIENT
  Age: 19 Year
  Sex: Male
  Weight: 93 kg

DRUGS (3)
  1. ATOMOXETINE. [Suspect]
     Active Substance: ATOMOXETINE HYDROCHLORIDE
     Indication: ATTENTION DEFICIT HYPERACTIVITY DISORDER
     Dosage: 80 MILLIGRAM, UNK (DOSE REDUCED)
     Route: 048
     Dates: end: 20190913
  2. FOLIC ACID. [Concomitant]
     Active Substance: FOLIC ACID
     Indication: PRODUCT USED FOR UNKNOWN INDICATION
     Dosage: 5 MILLIGRAM, QD
     Route: 065
  3. TOPIRAMATE. [Concomitant]
     Active Substance: TOPIRAMATE
     Indication: EPILEPSY
     Dosage: 275 MILLIGRAM, QD
     Route: 065

REACTIONS (4)
  - Aggression [Unknown]
  - Circulatory collapse [Unknown]
  - Tachycardia [Unknown]
  - Dizziness [Unknown]
